FAERS Safety Report 18917924 (Version 2)
Quarter: 2021Q1

REPORT INFORMATION
  Report Type: Report from Study
  Country: US (occurrence: US)
  Receive Date: 20210219
  Receipt Date: 20210311
  Transmission Date: 20210420
  Serious: Yes (Other)
  Sender: FDA-Public Use
  Company Number: NVSC2021US033647

PATIENT
  Sex: Female

DRUGS (2)
  1. PIQRAY [Suspect]
     Active Substance: ALPELISIB
     Dosage: (ONCE DAILY) 300 MG, QD
     Route: 048
  2. PIQRAY [Suspect]
     Active Substance: ALPELISIB
     Indication: PRODUCT USED FOR UNKNOWN INDICATION
     Dosage: UNK
     Route: 048

REACTIONS (20)
  - Rash pruritic [Unknown]
  - Dry skin [Unknown]
  - Diarrhoea [Unknown]
  - Anxiety [Unknown]
  - Product dose omission issue [Unknown]
  - Vomiting [Unknown]
  - Sleep disorder [Unknown]
  - Decreased appetite [Unknown]
  - Hypersensitivity [Unknown]
  - Peripheral swelling [Unknown]
  - Dry mouth [Unknown]
  - Lip dry [Unknown]
  - Skin weeping [Unknown]
  - Irritability [Unknown]
  - Weight decreased [Unknown]
  - Nausea [Unknown]
  - Blood glucose increased [Unknown]
  - Bowel movement irregularity [Unknown]
  - Skin tightness [Unknown]
  - Pruritus [Unknown]
